FAERS Safety Report 15884412 (Version 1)
Quarter: 2019Q1

REPORT INFORMATION
  Report Type: Spontaneous
  Country: US (occurrence: US)
  Receive Date: 20190110
  Receipt Date: 20190110
  Transmission Date: 20190417
  Serious: No
  Sender: FDA-Public Use
  Company Number: None

PATIENT
  Age: 73 Year
  Sex: Female

DRUGS (1)
  1. CAPECITABINE TAB 500MG [Suspect]
     Active Substance: CAPECITABINE
     Dosage: ?          OTHER DOSE:1000MG/1500MG;?
     Route: 048
     Dates: start: 201810

REACTIONS (5)
  - Ulcer [None]
  - Stomatitis [None]
  - Skin ulcer [None]
  - Skin discolouration [None]
  - Pharyngeal ulceration [None]

NARRATIVE: CASE EVENT DATE: 20190109
